FAERS Safety Report 4950517-6 (Version None)
Quarter: 2006Q1

REPORT INFORMATION
  Report Type: 
  Country: None (occurrence: None)
  Receive Date: 20060322
  Receipt Date: 20060313
  Transmission Date: 20060701
  Serious: Yes (Hospitalization)
  Sender: FDA-Public Use
  Company Number: IT-GLAXOSMITHKLINE-B0416365A

PATIENT
  Age: 51 Year
  Sex: Female

DRUGS (1)
  1. AUGMENTIN '125' [Suspect]
     Indication: PHARYNGITIS
     Dosage: 1G TWICE PER DAY
     Route: 048
     Dates: start: 20060305, end: 20060305

REACTIONS (2)
  - INFLAMMATION [None]
  - OEDEMA [None]
